FAERS Safety Report 13711947 (Version 1)
Quarter: 2017Q3

REPORT INFORMATION
  Report Type: Spontaneous
  Country: US (occurrence: US)
  Receive Date: 20170703
  Receipt Date: 20170703
  Transmission Date: 20171127
  Serious: Yes (Hospitalization)
  Sender: FDA-Public Use
  Company Number: None

PATIENT
  Age: 81 Year
  Sex: Male
  Weight: 116 kg

DRUGS (1)
  1. APIXIBAN [Suspect]
     Active Substance: APIXABAN
     Indication: ATRIAL FIBRILLATION
     Dosage: ?          OTHER DOSE:MG;?
     Route: 048
     Dates: start: 20170421, end: 20170630

REACTIONS (4)
  - Sepsis [None]
  - Cerebral haemorrhage [None]
  - Unresponsive to stimuli [None]
  - Arthropathy [None]

NARRATIVE: CASE EVENT DATE: 20170630
